FAERS Safety Report 9095538 (Version 1)
Quarter: 2013Q1

REPORT INFORMATION
  Report Type: Spontaneous
  Country: DK (occurrence: None)
  Receive Date: 20130123
  Receipt Date: 20130123
  Transmission Date: 20140127
  Serious: Yes (Other)
  Sender: FDA-Public Use
  Company Number: 2013-00667

PATIENT
  Sex: Female

DRUGS (10)
  1. EPIRUBICIN HYDROCHLORIDE [Suspect]
     Indication: PRODUCT USED FOR UNKNOWN INDICATION
  2. CYCLOPHOSPHAMIDE (CYCLOPHOSPHAMIDE) [Suspect]
  3. FLUOROURACIL (FLUOROURACIL) [Suspect]
  4. XELODA [Suspect]
     Dates: start: 201101
  5. BONDRONAT [Suspect]
     Dates: start: 201101
  6. HERCEPTIN [Suspect]
     Dates: start: 201101
  7. TAXOTERE [Suspect]
     Dates: start: 201008
  8. VINORELBINE [Suspect]
  9. LAPATINIB [Suspect]
  10. TAXOL [Suspect]

REACTIONS (7)
  - Joint ankylosis [None]
  - Rash [None]
  - Breast cancer [None]
  - Neoplasm progression [None]
  - Metastases to liver [None]
  - Metastases to bone [None]
  - Metastases to central nervous system [None]
